FAERS Safety Report 5773770-8 (Version None)
Quarter: 2008Q2

REPORT INFORMATION
  Report Type: 
  Country: None (occurrence: None)
  Receive Date: 20080601
  Receipt Date: 20080306
  Transmission Date: 20081010
  Serious: No
  Sender: FDA-Public Use
  Company Number: US200803001569

PATIENT
  Age: 35 Year
  Sex: Female
  Weight: 83.4 kg

DRUGS (2)
  1. BYETTA [Suspect]
     Indication: POLYCYSTIC OVARIES
     Dosage: 5 UG, 2/D, SUBCUTANEOUS ; 10 UG, 2/D, SUBCUTANEOUS
     Route: 058
     Dates: start: 20080101, end: 20080101
  2. BYETTA [Suspect]
     Indication: POLYCYSTIC OVARIES
     Dosage: 5 UG, 2/D, SUBCUTANEOUS ; 10 UG, 2/D, SUBCUTANEOUS
     Route: 058
     Dates: start: 20080101

REACTIONS (1)
  - BREAST DISCHARGE [None]
